FAERS Safety Report 6315430-0 (Version None)
Quarter: 2009Q3

REPORT INFORMATION
  Report Type: 
  Country: None (occurrence: None)
  Receive Date: 20090819
  Receipt Date: 20090807
  Transmission Date: 20100115
  Serious: Yes (Other)
  Sender: FDA-Public Use
  Company Number: US-PFIZER INC-2009253513

PATIENT
  Sex: Female
  Weight: 74.83 kg

DRUGS (2)
  1. LYRICA [Suspect]
     Indication: NEUROPATHY PERIPHERAL
     Dosage: 50 MG, 2X/DAY
     Route: 048
     Dates: start: 20070101
  2. EVISTA [Concomitant]
     Dosage: UNK

REACTIONS (5)
  - GAIT DISTURBANCE [None]
  - KNEE OPERATION [None]
  - MICTURITION URGENCY [None]
  - URINARY INCONTINENCE [None]
  - VERTIGO [None]
